FAERS Safety Report 25480576 (Version 2)
Quarter: 2025Q3

REPORT INFORMATION
  Report Type: Spontaneous
  Country: BR (occurrence: BR)
  Receive Date: 20250625
  Receipt Date: 20250708
  Transmission Date: 20251020
  Serious: No
  Sender: PFIZER
  Company Number: BR-PFIZER INC-202500118591

PATIENT
  Age: 8 Year
  Sex: Male

DRUGS (1)
  1. SOMATROGON [Suspect]
     Active Substance: SOMATROGON
     Dosage: 20 MG, WEEKLY
     Dates: start: 20250605

REACTIONS (4)
  - Injection site pain [Unknown]
  - Injection site mass [Unknown]
  - Incorrect route of product administration [Unknown]
  - Patient-device incompatibility [Unknown]
